FAERS Safety Report 13621659 (Version 1)
Quarter: 2017Q2

REPORT INFORMATION
  Report Type: Spontaneous
  Country: DE (occurrence: DE)
  Receive Date: 20170607
  Receipt Date: 20170607
  Transmission Date: 20170830
  Serious: Yes (Life-Threatening, Other)
  Sender: FDA-Public Use
  Company Number: DE-TORRENT-00006564

PATIENT
  Age: 63 Year
  Sex: Female

DRUGS (10)
  1. FOLSAEURE [Concomitant]
     Active Substance: FOLIC ACID
  2. BERLTHYROX [Concomitant]
  3. QUETIAPINE. [Concomitant]
     Active Substance: QUETIAPINE
  4. PANTOPRAZOLE [Concomitant]
     Active Substance: PANTOPRAZOLE
  5. OLANZAPINE. [Suspect]
     Active Substance: OLANZAPINE
  6. TAVOR (LORAZEPAM) [Concomitant]
     Active Substance: LORAZEPAM
  7. ATORVASTATIN [Concomitant]
     Active Substance: ATORVASTATIN
  8. BISOPROLOL [Concomitant]
     Active Substance: BISOPROLOL
  9. MIRTAZAPINE. [Suspect]
     Active Substance: MIRTAZAPINE
  10. CIRCADIN [Concomitant]
     Active Substance: MELATONIN

REACTIONS (1)
  - Suicidal ideation [Recovered/Resolved]

NARRATIVE: CASE EVENT DATE: 20150621
